FAERS Safety Report 4527044-3 (Version None)
Quarter: 2004Q4

REPORT INFORMATION
  Report Type: 
  Country: None (occurrence: None)
  Receive Date: 20041129
  Receipt Date: 20040510
  Transmission Date: 20050328
  Serious: Yes (Hospitalization, Other)
  Sender: FDA-Public Use
  Company Number: USA040465468

PATIENT
  Age: 26 Year
  Sex: Male
  Weight: 86 kg

DRUGS (2)
  1. ZYPREXA [Suspect]
     Indication: SCHIZOAFFECTIVE DISORDER
     Dosage: 30 MG AT BEDTIME
     Dates: start: 19970501, end: 20030101
  2. DEPAKENE [Concomitant]

REACTIONS (5)
  - DIABETES MELLITUS INSULIN-DEPENDENT [None]
  - DIABETIC KETOACIDOSIS [None]
  - PRESCRIBED OVERDOSE [None]
  - WEIGHT DECREASED [None]
  - WEIGHT INCREASED [None]
